FAERS Safety Report 4910666-5 (Version None)
Quarter: 2006Q1

REPORT INFORMATION
  Report Type: 
  Country: None (occurrence: None)
  Receive Date: 20060208
  Receipt Date: 20060208
  Transmission Date: 20060701
  Serious: Yes (Hospitalization)
  Sender: FDA-Public Use
  Company Number: None

PATIENT
  Age: 72 Year
  Sex: Male
  Weight: 94.3482 kg

DRUGS (13)
  1. AMITRIPTYLINE HCL [Suspect]
     Indication: NEUROPATHY
     Dosage: 20 MG QHS
  2. OXYBUTYNIN [Suspect]
     Indication: INCONTINENCE
     Dosage: 5 MG BID
  3. METOPROLOL [Suspect]
     Indication: CORONARY ARTERY DISEASE
     Dosage: 150 MG BID
  4. ACCU-CHEK COMFORT CV (GLUCOSE) [Concomitant]
  5. ASPIRIN [Concomitant]
  6. CLOPIDOGREL [Concomitant]
  7. CLOTRIMAZOLE [Concomitant]
  8. FLUNISOLIDE [Concomitant]
  9. GEMFIBROZIL [Concomitant]
  10. GLYBURIDE [Concomitant]
  11. LANCET, TECHLITE [Concomitant]
  12. METFORMIN HCL [Concomitant]
  13. SILDENAFIL [Concomitant]

REACTIONS (2)
  - ASTHENIA [None]
  - ORTHOSTATIC HYPOTENSION [None]
